FAERS Safety Report 19887342 (Version 9)
Quarter: 2022Q1

REPORT INFORMATION
  Report Type: Spontaneous
  Country: GB (occurrence: GB)
  Receive Date: 20210928
  Receipt Date: 20220302
  Transmission Date: 20220423
  Serious: Yes (Other)
  Sender: FDA-Public Use
  Company Number: GB-CELLTRION INC.-2021GB013127

PATIENT

DRUGS (3)
  1. INFLIXIMAB [Suspect]
     Active Substance: INFLIXIMAB
     Indication: Colitis ulcerative
     Dosage: 120 MG PRE FILLED PEN
     Route: 058
     Dates: start: 202108
  2. INFLIXIMAB [Suspect]
     Active Substance: INFLIXIMAB
     Dosage: UNK, EVERY 2 WEEKS
     Route: 065
     Dates: start: 202107, end: 202109
  3. INFLIXIMAB [Suspect]
     Active Substance: INFLIXIMAB
     Dosage: UNK, EVERY 2 WEEKS (DOSE FORM: 194)
     Route: 065
     Dates: start: 202107, end: 202109

REACTIONS (4)
  - Colitis ulcerative [Recovering/Resolving]
  - COVID-19 [Recovered/Resolved]
  - Therapeutic response shortened [Unknown]
  - Therapeutic product effect decreased [Unknown]
